FAERS Safety Report 24712205 (Version 1)
Quarter: 2024Q4

REPORT INFORMATION
  Report Type: Spontaneous
  Country: FR (occurrence: FR)
  Receive Date: 20241209
  Receipt Date: 20241209
  Transmission Date: 20250114
  Serious: Yes (Death)
  Sender: PFIZER
  Company Number: None

PATIENT
  Age: 42 Year
  Sex: Female
  Weight: 50.5 kg

DRUGS (2)
  1. PIROXICAM [Suspect]
     Active Substance: PIROXICAM
     Indication: Self-medication
     Dosage: UNK
     Route: 048
     Dates: start: 202411
  2. VALIUM [Concomitant]
     Active Substance: DIAZEPAM
     Indication: Self-medication
     Dosage: UNK
     Route: 048

REACTIONS (1)
  - Septic shock [Fatal]

NARRATIVE: CASE EVENT DATE: 20241111
